FAERS Safety Report 6035307-8 (Version None)
Quarter: 2009Q1

REPORT INFORMATION
  Report Type: 
  Country: None (occurrence: None)
  Receive Date: 20090108
  Receipt Date: 20081223
  Transmission Date: 20090719
  Serious: Yes (Death)
  Sender: FDA-Public Use
  Company Number: 8040782

PATIENT
  Sex: Female

DRUGS (4)
  1. PREDNISOLONE [Suspect]
     Indication: RHEUMATOID ARTHRITIS
     Dosage: 3 MG PO
     Route: 048
     Dates: start: 20071101
  2. HYDROXYCHLOROQUINE SULPHATE [Concomitant]
  3. LANSOPRAZOLE [Concomitant]
  4. METHOTREXATE [Concomitant]

REACTIONS (1)
  - HAEMATEMESIS [None]
